FAERS Safety Report 15376877 (Version 1)
Quarter: 2018Q3

REPORT INFORMATION
  Report Type: Spontaneous
  Country: US (occurrence: US)
  Receive Date: 20180913
  Receipt Date: 20180913
  Transmission Date: 20181010
  Serious: No
  Sender: FDA-Public Use
  Company Number: US-JNJFOC-20180816392

PATIENT
  Age: 84 Year
  Sex: Female
  Weight: 58.97 kg

DRUGS (9)
  1. MENS ROGAINE EXTRA STRENGTH [Suspect]
     Active Substance: MINOXIDIL
     Route: 061
  2. VITAMIN B12 [Concomitant]
     Active Substance: CYANOCOBALAMIN
     Indication: ROUTINE HEALTH MAINTENANCE
     Dosage: USED FROM 10 YEARS
     Route: 065
  3. METOPROLOL. [Concomitant]
     Active Substance: METOPROLOL
     Indication: CARDIAC DISORDER
     Dosage: USED FOR ABOUT 10 YEARS, TOOK THIS MORNING LAST.
     Route: 065
  4. ZOLPIDEM [Concomitant]
     Active Substance: ZOLPIDEM\ZOLPIDEM TARTRATE
     Indication: SLEEP DISORDER
     Dosage: ONE PILL AT NIGHT
     Route: 048
  5. ELIQUIS [Concomitant]
     Active Substance: APIXABAN
     Indication: COAGULOPATHY
     Dosage: USES IT EVERY DAY, USED IT FOR OVER 10 YEARS,  USED IT LAST THIS MORNING
     Route: 065
  6. MENS ROGAINE EXTRA STRENGTH [Suspect]
     Active Substance: MINOXIDIL
     Indication: ALOPECIA
     Dosage: ALMOST A CAPFUL
     Route: 061
     Dates: start: 2008
  7. AMIODARONE [Concomitant]
     Active Substance: AMIODARONE
     Indication: HEART RATE IRREGULAR
     Dosage: USED OVER A 10 YEARS.??USING IN MORNING
     Route: 065
  8. ATORVASTATIN [Concomitant]
     Active Substance: ATORVASTATIN
     Indication: BLOOD CHOLESTEROL INCREASED
     Dosage: USES EVERY NIGHT FOR OVER TEN YEARS, USED IT LAST NIGHT
     Route: 065
  9. LASIX [Concomitant]
     Active Substance: FUROSEMIDE
     Indication: PRODUCT USED FOR UNKNOWN INDICATION
     Dosage: AS A WATER PILL, AS NEEDED
     Route: 065

REACTIONS (7)
  - Product formulation issue [Unknown]
  - Overdose [Unknown]
  - Alopecia [Not Recovered/Not Resolved]
  - Wrong technique in product usage process [Unknown]
  - Product use issue [Unknown]
  - Drug administration error [Unknown]
  - Off label use [Unknown]

NARRATIVE: CASE EVENT DATE: 2008
